FAERS Safety Report 10693814 (Version 2)
Quarter: 2015Q1

REPORT INFORMATION
  Report Type: Spontaneous
  Country: BR (occurrence: BR)
  Receive Date: 20150106
  Receipt Date: 20150106
  Transmission Date: 20150721
  Serious: Yes (Hospitalization, Other)
  Sender: FDA-Public Use
  Company Number: PHHY2014BR160295

PATIENT
  Age: 67 Year
  Sex: Female

DRUGS (4)
  1. RASILEZ [Suspect]
     Active Substance: ALISKIREN
     Indication: HYPERTENSION
     Dosage: 1 DF, QD
     Route: 048
  2. NEBILET [Concomitant]
     Active Substance: NEBIVOLOL
     Indication: BLOOD PRESSURE INADEQUATELY CONTROLLED
     Dosage: 5 MG, QD
     Route: 065
  3. RASILEZ [Suspect]
     Active Substance: ALISKIREN
     Indication: NEPHROPATHY
  4. LOSARTAN [Concomitant]
     Active Substance: LOSARTAN
     Indication: BLOOD PRESSURE INADEQUATELY CONTROLLED
     Dosage: 50 MG, QD
     Route: 065

REACTIONS (4)
  - Blood pressure increased [Recovered/Resolved]
  - Eye pain [Recovered/Resolved]
  - Headache [Recovered/Resolved]
  - Product use issue [Unknown]

NARRATIVE: CASE EVENT DATE: 20141102
